FAERS Safety Report 5752754-X (Version None)
Quarter: 2008Q2

REPORT INFORMATION
  Report Type: 
  Country: None (occurrence: None)
  Receive Date: 20080529
  Receipt Date: 20080517
  Transmission Date: 20081010
  Serious: Yes (Hospitalization, Other)
  Sender: FDA-Public Use
  Company Number: AU-PFIZER INC-2008042620

PATIENT
  Sex: Female

DRUGS (21)
  1. ZOLOFT [Suspect]
  2. XANAX [Interacting]
  3. LYRICA [Suspect]
  4. CLONAZEPAM [Suspect]
  5. AROPAX [Interacting]
  6. FLUOXETINE HCL [Suspect]
  7. MIRTAZAPINE [Suspect]
  8. PROTHIADEN [Suspect]
  9. VALIUM [Concomitant]
  10. PROZAC [Concomitant]
  11. SEREPAX [Concomitant]
  12. RIVOTRIL [Concomitant]
  13. TEMAZE [Concomitant]
  14. EFFEXOR [Concomitant]
  15. TRYPTANOL [Concomitant]
  16. ZOFRAN [Concomitant]
  17. BRUFEN [Concomitant]
  18. LOVAN [Concomitant]
  19. ALPRAZOLAM [Concomitant]
  20. ENDEP [Concomitant]
  21. AVANZA [Concomitant]

REACTIONS (46)
  - ABDOMINAL DISCOMFORT [None]
  - ABNORMAL BEHAVIOUR [None]
  - AGGRESSION [None]
  - AMNESIA [None]
  - ANGER [None]
  - ANXIETY [None]
  - ARTHRALGIA [None]
  - ARTHRITIS [None]
  - AUTOIMMUNE DISORDER [None]
  - BALANCE DISORDER [None]
  - BLOOD PRESSURE INCREASED [None]
  - CONFUSIONAL STATE [None]
  - CONVULSION [None]
  - CORNEAL LESION [None]
  - DEHYDRATION [None]
  - DEPRESSED MOOD [None]
  - DISTURBANCE IN ATTENTION [None]
  - DRUG DEPENDENCE [None]
  - DRUG INTERACTION [None]
  - DRUG WITHDRAWAL SYNDROME [None]
  - DYSPNOEA [None]
  - FEELING ABNORMAL [None]
  - FIBROMYALGIA [None]
  - GASTRIC ULCER [None]
  - GENERAL PHYSICAL HEALTH DETERIORATION [None]
  - GINGIVAL BLEEDING [None]
  - HALLUCINATION, AUDITORY [None]
  - ILL-DEFINED DISORDER [None]
  - IMPAIRED DRIVING ABILITY [None]
  - INSOMNIA [None]
  - IRRITABILITY [None]
  - MENORRHAGIA [None]
  - MUSCLE SPASMS [None]
  - NAUSEA [None]
  - NEPHROLITHIASIS [None]
  - PERSONALITY CHANGE [None]
  - PERSONALITY DISORDER [None]
  - PYREXIA [None]
  - SEDATION [None]
  - SUICIDAL IDEATION [None]
  - SURGERY [None]
  - SYNCOPE [None]
  - TEMPERATURE REGULATION DISORDER [None]
  - THIRST [None]
  - TREMOR [None]
  - WHITE BLOOD CELL COUNT DECREASED [None]
